FAERS Safety Report 22334134 (Version 2)
Quarter: 2023Q2

REPORT INFORMATION
  Report Type: Report from Study
  Country: US (occurrence: US)
  Receive Date: 20230517
  Receipt Date: 20230519
  Transmission Date: 20230721
  Serious: No
  Sender: FDA-Public Use
  Company Number: US-002147023-NVSC2023US109302

PATIENT
  Sex: Male

DRUGS (1)
  1. OMNITROPE [Suspect]
     Active Substance: SOMATROPIN
     Indication: Short stature
     Dosage: 1 MG, QD
     Route: 058

REACTIONS (4)
  - Device leakage [Not Recovered/Not Resolved]
  - Accidental exposure to product [Unknown]
  - Wrong technique in device usage process [Unknown]
  - Device difficult to use [Unknown]
